FAERS Safety Report 10085954 (Version 1)
Quarter: 2014Q2

REPORT INFORMATION
  Report Type: Spontaneous
  Country: DE (occurrence: None)
  Receive Date: 20140416
  Receipt Date: 20140416
  Transmission Date: 20141212
  Serious: Yes (Life-Threatening, Hospitalization)
  Sender: FDA-Public Use
  Company Number: DE-20140067

PATIENT
  Age: 50 Year
  Sex: Female

DRUGS (1)
  1. GADOTERIC ACID [Suspect]
     Indication: NUCLEAR MAGNETIC RESONANCE IMAGING
     Dosage: 20 ML (20 ML, 1 IN 1 D), INTRAVENOUS (NOT OTHERWISE SPECIFIED)
     Route: 042
     Dates: start: 20140402, end: 20140402

REACTIONS (6)
  - Circulatory collapse [None]
  - Cough [None]
  - Dyspnoea [None]
  - Apathy [None]
  - Hypotension [None]
  - Unresponsive to stimuli [None]
